FAERS Safety Report 5904854-9 (Version None)
Quarter: 2008Q4

REPORT INFORMATION
  Report Type: 
  Country: None (occurrence: None)
  Receive Date: 20081001
  Receipt Date: 20080923
  Transmission Date: 20090506
  Serious: Yes (Other)
  Sender: FDA-Public Use
  Company Number: A0738189A

PATIENT
  Age: 14 Year
  Sex: Female
  Weight: 47.7 kg

DRUGS (7)
  1. ADVAIR DISKUS 100/50 [Suspect]
     Indication: ASTHMA
     Dosage: 1PUFF TWICE PER DAY
     Route: 055
     Dates: start: 20021202, end: 20080602
  2. FLONASE [Concomitant]
  3. SINGULAIR [Concomitant]
  4. ALLEGRA [Concomitant]
  5. PREVACID [Concomitant]
  6. REGLAN [Concomitant]
  7. ALBUTEROL [Concomitant]

REACTIONS (5)
  - ADRENAL INSUFFICIENCY [None]
  - BRONCHIAL HYPERREACTIVITY [None]
  - GROWTH RETARDATION [None]
  - ILL-DEFINED DISORDER [None]
  - MENSTRUATION DELAYED [None]
